FAERS Safety Report 25154195 (Version 1)
Quarter: 2025Q2

REPORT INFORMATION
  Report Type: Spontaneous
  Country: US (occurrence: US)
  Receive Date: 20250403
  Receipt Date: 20250403
  Transmission Date: 20250717
  Serious: Yes (Other)
  Sender: CHATTEM
  Company Number: US-DialogSolutions-SAAVPROD-PI750358-C1

PATIENT
  Sex: Male

DRUGS (17)
  1. HYDROCORTISONE [Suspect]
     Active Substance: HYDROCORTISONE
     Indication: B precursor type acute leukaemia
     Route: 037
  2. PREDNISONE [Suspect]
     Active Substance: PREDNISONE
     Indication: B precursor type acute leukaemia
  3. ANTI-THYMOCYTE GLOBULIN (RABBIT) NOS [Suspect]
     Active Substance: LAPINE T-LYMPHOCYTE IMMUNE GLOBULIN
     Indication: B precursor type acute leukaemia
     Dates: end: 20180906
  4. ANTI-THYMOCYTE GLOBULIN (RABBIT) NOS [Suspect]
     Active Substance: LAPINE T-LYMPHOCYTE IMMUNE GLOBULIN
     Indication: Stem cell transplant
  5. CLOFARABINE [Concomitant]
     Active Substance: CLOFARABINE
     Indication: B precursor type acute leukaemia
     Dates: start: 20180901, end: 20180906
  6. CLOFARABINE [Concomitant]
     Active Substance: CLOFARABINE
     Indication: Stem cell transplant
  7. PALIVIZUMAB [Concomitant]
     Active Substance: PALIVIZUMAB
     Indication: B precursor type acute leukaemia
     Dates: start: 2018
  8. IMMUNE GLOBULIN NOS [Concomitant]
     Active Substance: IMMUNE GLOBULIN NOS
     Indication: B precursor type acute leukaemia
     Route: 042
     Dates: start: 2018
  9. BLINATUMOMAB [Concomitant]
     Active Substance: BLINATUMOMAB
     Indication: B precursor type acute leukaemia
     Dosage: 5 UG/KG, QD
     Dates: start: 20180604
  10. BLINATUMOMAB [Concomitant]
     Active Substance: BLINATUMOMAB
     Dosage: 15 UG/KG, QD
     Dates: start: 20180604
  11. LEVETIRACETAM [Concomitant]
     Active Substance: LEVETIRACETAM
     Indication: Seizure
     Dates: start: 2018
  12. INOTUZUMAB OZOGAMICIN [Concomitant]
     Active Substance: INOTUZUMAB OZOGAMICIN
     Indication: B precursor type acute leukaemia
  13. INOTUZUMAB OZOGAMICIN [Concomitant]
     Active Substance: INOTUZUMAB OZOGAMICIN
     Dates: start: 20180718
  14. THIOTEPA [Concomitant]
     Active Substance: THIOTEPA
     Indication: B precursor type acute leukaemia
     Dates: start: 20180901, end: 20180906
  15. THIOTEPA [Concomitant]
     Active Substance: THIOTEPA
     Indication: Stem cell transplant
  16. MELPHALAN [Concomitant]
     Active Substance: MELPHALAN
     Indication: B precursor type acute leukaemia
     Dates: start: 20180901, end: 20180906
  17. MELPHALAN [Concomitant]
     Active Substance: MELPHALAN
     Indication: Stem cell transplant

REACTIONS (1)
  - Adrenal insufficiency [Recovered/Resolved]

NARRATIVE: CASE EVENT DATE: 20180101
